FAERS Safety Report 7263517-0 (Version None)
Quarter: 2011Q1

REPORT INFORMATION
  Report Type: 
  Country: None (occurrence: None)
  Receive Date: 20110130
  Receipt Date: 20101201
  Transmission Date: 20110831
  Serious: No
  Sender: FDA-Public Use
  Company Number: US-ABBOTT-10P-163-0689555-00

PATIENT
  Sex: Male
  Weight: 102.6 kg

DRUGS (4)
  1. METHADONE [Concomitant]
     Indication: RHEUMATOID ARTHRITIS
  2. HUMIRA [Suspect]
     Indication: RHEUMATOID ARTHRITIS
     Route: 058
     Dates: start: 20090101, end: 20100701
  3. METHOTREXATE [Concomitant]
     Indication: RHEUMATOID ARTHRITIS
  4. OXYCONTIN [Concomitant]
     Indication: RHEUMATOID ARTHRITIS

REACTIONS (1)
  - PAIN [None]
